FAERS Safety Report 6382028-8 (Version None)
Quarter: 2009Q3

REPORT INFORMATION
  Report Type: 
  Country: None (occurrence: None)
  Receive Date: 20090930
  Receipt Date: 20090925
  Transmission Date: 20100115
  Serious: Yes (Death)
  Sender: FDA-Public Use
  Company Number: PHHY2009MX38406

PATIENT
  Sex: Female

DRUGS (2)
  1. TEGRETOL [Suspect]
     Indication: EPILEPSY
     Dosage: 3 DF/DAY
     Route: 048
     Dates: start: 20060101
  2. TOPAMAX [Concomitant]
     Dosage: 2 TABLETS PER DAY
     Dates: start: 20060101

REACTIONS (1)
  - GASTRIC CANCER [None]
